FAERS Safety Report 4715615-0 (Version None)
Quarter: 2005Q3

REPORT INFORMATION
  Report Type: 
  Country: None (occurrence: None)
  Receive Date: 20050714
  Receipt Date: 20050701
  Transmission Date: 20060218
  Serious: Yes (Death)
  Sender: FDA-Public Use
  Company Number: 2005-DE-02547GD

PATIENT

DRUGS (9)
  1. MORPHINE [Suspect]
     Indication: ANALGESIC EFFECT
     Dosage: 4 MG/HOUR IN THE EMERGENCY ROOM, 1 OR 2 MG FOR SURGERY; THE POSTOPERATIVE DOSE WAS NOT REPORTED (SEE
     Route: 008
  2. MORPHINE [Suspect]
     Indication: POSTOPERATIVE ANALGESIA
     Dosage: 4 MG/HOUR IN THE EMERGENCY ROOM, 1 OR 2 MG FOR SURGERY; THE POSTOPERATIVE DOSE WAS NOT REPORTED (SEE
     Route: 008
  3. ACETAMINOPHEN [Suspect]
     Indication: POSTOPERATIVE ANALGESIA
     Dosage: 4 G (NR, 6 HOURLY), NR
  4. BUPIVACAINE [Suspect]
     Indication: ANALGESIC EFFECT
     Dosage: EMERGENCY ROOM: 0.25%, BOLUS OF 25 MG, FOLLOWED BY A CONTINUOUS EPIDURAL INFUSION OF 0.125%; SURGERY
     Route: 008
  5. PROPOFOL [Suspect]
     Indication: ANAESTHESIA
     Dosage: 10 - 40 MCG/KG/MIN (NR), NR
  6. PROPOFOL [Suspect]
     Indication: POSTOPERATIVE ANALGESIA
     Dosage: 10 - 40 MCG/KG/MIN (NR), NR
  7. ROFECOXIB [Suspect]
     Indication: ANALGESIC EFFECT
     Dosage: 25 MG (NR, ONCE DAILY), NR
  8. CEFUROXIME [Suspect]
     Indication: ANTIBIOTIC PROPHYLAXIS
     Dosage: 1.5 G (NR, ONCE (INTRAOPERATIVELY)), NR
  9. ENOXAPARIN (ENOXAPARIN) [Suspect]
     Indication: THROMBOSIS PROPHYLAXIS
     Dosage: 40 MG (NR), NR

REACTIONS (1)
  - CARDIAC FAILURE ACUTE [None]
